FAERS Safety Report 16891907 (Version 1)
Quarter: 2019Q4

REPORT INFORMATION
  Report Type: Spontaneous
  Country: DE (occurrence: DE)
  Receive Date: 20191007
  Receipt Date: 20191007
  Transmission Date: 20200122
  Serious: Yes (Congenital Anomaly)
  Sender: FDA-Public Use
  Company Number: DE-MALLINCKRODT-T201906698

PATIENT
  Sex: Male
  Weight: 4 kg

DRUGS (9)
  1. VAXIGRIPTETRA [Concomitant]
     Active Substance: INFLUENZA VIRUS VACCINE QUADRIVALENT TYPE A+B
     Indication: IMMUNISATION
     Dosage: UNK
     Route: 064
     Dates: start: 20181017, end: 20181017
  2. BUDESONIDE;FORMOTEROL FUMARATE [Concomitant]
     Active Substance: BUDESONIDE\FORMOTEROL FUMARATE
     Indication: PRODUCT USED FOR UNKNOWN INDICATION
     Dosage: UNK
     Route: 064
     Dates: start: 20180519, end: 20190222
  3. QUETIAPINE. [Suspect]
     Active Substance: QUETIAPINE
     Indication: COMPLEX REGIONAL PAIN SYNDROME
     Dosage: 50 MILLIGRAM, QD
     Route: 064
     Dates: start: 20180512, end: 20190222
  4. PROPOFOL. [Concomitant]
     Active Substance: PROPOFOL
     Indication: GENERAL ANAESTHESIA
     Dosage: ONCE AROUND CONCEPTION OR THE WEEK BEFORE CONCEPTION
     Route: 064
  5. VENLAFAXINE [Suspect]
     Active Substance: VENLAFAXINE HYDROCHLORIDE
     Indication: COMPLEX REGIONAL PAIN SYNDROME
     Dosage: 75 MILLIGRAM, QD
     Route: 064
     Dates: start: 20180512, end: 20190222
  6. SPIRIVA [Concomitant]
     Active Substance: TIOTROPIUM BROMIDE MONOHYDRATE
     Indication: PRODUCT USED FOR UNKNOWN INDICATION
     Dosage: 2.5 MICROGRAM, QD
     Route: 064
     Dates: start: 20180519, end: 20190222
  7. EXALGO [Suspect]
     Active Substance: HYDROMORPHONE HYDROCHLORIDE
     Indication: COMPLEX REGIONAL PAIN SYNDROME
     Dosage: 20 MILLIGRAM, QD
     Route: 064
     Dates: start: 20180512, end: 20181119
  8. KETANEST [KETAMINE HYDROCHLORIDE] [Concomitant]
     Active Substance: KETAMINE HYDROCHLORIDE
     Indication: GENERAL ANAESTHESIA
     Dosage: ONCE AROUND CONCEPTION OR THE WEEK BEFORE CONCEPTION
     Route: 064
  9. FOLIC ACID. [Concomitant]
     Active Substance: FOLIC ACID
     Indication: PROPHYLAXIS OF NEURAL TUBE DEFECT
     Dosage: UNK
     Route: 064

REACTIONS (4)
  - Foetal exposure during pregnancy [Unknown]
  - Congenital megaureter [Unknown]
  - Kidney duplex [Unknown]
  - Congenital hydronephrosis [Unknown]
